FAERS Safety Report 16655685 (Version 1)
Quarter: 2019Q3

REPORT INFORMATION
  Report Type: Spontaneous
  Country: GB (occurrence: GB)
  Receive Date: 20190801
  Receipt Date: 20190801
  Transmission Date: 20191004
  Serious: Yes (Hospitalization, Other)
  Sender: FDA-Public Use
  Company Number: GB-AXELLIA-002612

PATIENT
  Sex: Male
  Weight: 3 kg

DRUGS (10)
  1. MIDAZOLAM [Concomitant]
     Active Substance: MIDAZOLAM HYDROCHLORIDE
  2. DOPAMINE [Concomitant]
     Active Substance: DOPAMINE HYDROCHLORIDE
  3. VANCOMYCIN [Suspect]
     Active Substance: VANCOMYCIN
     Indication: ANTIBIOTIC THERAPY
  4. HYDROCORTISONE. [Concomitant]
     Active Substance: HYDROCORTISONE
     Indication: HYPOTENSION
  5. MILRINONE [Concomitant]
     Active Substance: MILRINONE
  6. EPINEPHRINE. [Concomitant]
     Active Substance: EPINEPHRINE
  7. VECURONIUM [Concomitant]
     Active Substance: VECURONIUM BROMIDE
  8. VANCOMYCIN [Suspect]
     Active Substance: VANCOMYCIN
     Indication: ANTIBIOTIC THERAPY
     Dosage: TREATMENT WAS RECOMMENCED AT A LOWER RATE, 0.035 MG/MINUTE
  9. MORPHINE [Concomitant]
     Active Substance: MORPHINE
  10. NITRIC OXIDE. [Concomitant]
     Active Substance: NITRIC OXIDE
     Route: 055

REACTIONS (1)
  - Red man syndrome [Recovered/Resolved]
